FAERS Safety Report 17522217 (Version 2)
Quarter: 2021Q3

REPORT INFORMATION
  Report Type: Spontaneous
  Country: US (occurrence: US)
  Receive Date: 20200310
  Receipt Date: 20210827
  Transmission Date: 20211014
  Serious: No
  Sender: FDA-Public Use
  Company Number: US-VERTEX PHARMACEUTICALS-2020-003655

PATIENT
  Sex: Male

DRUGS (1)
  1. TRIKAFTA [Suspect]
     Active Substance: ELEXACAFTOR\IVACAFTOR\TEZACAFTOR
     Indication: CYSTIC FIBROSIS
     Dosage: UNSPECIFIED DOSAGE REGIMEN
     Route: 048
     Dates: start: 201912

REACTIONS (5)
  - Nasopharyngitis [Unknown]
  - Product dose omission issue [Recovered/Resolved]
  - Feeling abnormal [Unknown]
  - Dysphonia [Unknown]
  - Immune system disorder [Unknown]
